FAERS Safety Report 8471956-5 (Version None)
Quarter: 2012Q2

REPORT INFORMATION
  Report Type: 
  Country: None (occurrence: None)
  Receive Date: 20120323
  Receipt Date: 20111111
  Transmission Date: 20120825
  Serious: Yes (Hospitalization)
  Sender: FDA-Public Use
  Company Number: 163-21880-11103224

PATIENT
  Age: 71 Year
  Sex: Female
  Weight: 103.3748 kg

DRUGS (23)
  1. POTASSIUM CHLORIDE [Concomitant]
  2. MELPHALAN HYDROCHLORIDE [Concomitant]
  3. COMBIVENT [Concomitant]
  4. CYMBALTA [Concomitant]
  5. ADVAIR DISKUS 100/50 [Concomitant]
  6. CENTRUM SILVER (CENTRUM SILVER) [Concomitant]
  7. FERROUS SULFATE TAB [Concomitant]
  8. LEVAQUIN [Concomitant]
  9. AMBIEN [Concomitant]
  10. NASONEX [Concomitant]
  11. HYDRALAZINE HCL [Concomitant]
  12. HYDROCODONE-ACETAMINOPHEN (PROCET /USA/) [Concomitant]
  13. REGLAN [Concomitant]
  14. FLUIDS (I.V. SOLUTIONS) [Concomitant]
  15. COUMADIN [Concomitant]
  16. DIGOXIN [Concomitant]
  17. LORTAB [Concomitant]
  18. DEXAMETHASONE [Concomitant]
  19. MIRALAX [Concomitant]
  20. TOPROL-XL [Concomitant]
  21. REVLIMID [Suspect]
     Indication: MULTIPLE MYELOMA
     Dosage: 10 MG, DAILY, 2 WEEKS ON, 2 WEEKS OFF, PO
     Route: 048
     Dates: start: 20080310, end: 20110901
  22. EFFEXOR [Concomitant]
  23. PROTONIX [Concomitant]

REACTIONS (7)
  - COLONIC POLYP [None]
  - MULTIPLE MYELOMA [None]
  - COLITIS ISCHAEMIC [None]
  - DIVERTICULUM [None]
  - FAECES DISCOLOURED [None]
  - HYPOTENSION [None]
  - RENAL FAILURE [None]
